FAERS Safety Report 24602103 (Version 1)
Quarter: 2024Q4

REPORT INFORMATION
  Report Type: Spontaneous
  Country: US (occurrence: US)
  Receive Date: 20241111
  Receipt Date: 20241111
  Transmission Date: 20250114
  Serious: No
  Sender: BIOVITRUM
  Company Number: US-BIOVITRUM-2024-US-014398

PATIENT
  Age: 84 Year
  Sex: Female

DRUGS (3)
  1. VONJO [Suspect]
     Active Substance: PACRITINIB
     Indication: Myelofibrosis
     Dosage: TWICE A DAY
     Route: 048
     Dates: start: 20241104
  2. VONJO [Suspect]
     Active Substance: PACRITINIB
     Dosage: FREQUENCY NOT SPECIFIED
     Route: 048
  3. VONJO [Suspect]
     Active Substance: PACRITINIB
     Dosage: DAILY
     Route: 048

REACTIONS (4)
  - Nausea [Unknown]
  - Vomiting [Unknown]
  - Dizziness [Unknown]
  - Headache [Unknown]
